FAERS Safety Report 7955375 (Version 5)
Quarter: 2013Q3

REPORT INFORMATION
  Report Type: Spontaneous
  Country: US (occurrence: US)
  Receive Date: 20110523
  Receipt Date: 20130902
  Transmission Date: 20140515
  Serious: Yes (Hospitalization, Congenital Anomaly, Other)
  Sender: FDA-Public Use
  Company Number: US-PFIZER INC-2011105367

PATIENT
  Sex: Male
  Weight: 3 kg

DRUGS (12)
  1. ZOLOFT [Suspect]
     Indication: DEPRESSION
     Dosage: UNK
     Route: 064
     Dates: start: 200810, end: 200912
  2. ZOLOFT [Suspect]
     Dosage: 100 MG, UNK
     Route: 064
     Dates: start: 20090608
  3. ZOLOFT [Suspect]
     Dosage: 200 MG, UNK
     Route: 064
     Dates: start: 20090211
  4. SERTRALINE HCL [Suspect]
     Dosage: UNK
     Route: 064
     Dates: start: 200810, end: 200912
  5. NITROFURANTOIN [Concomitant]
     Dosage: 100 MG, UNK
     Route: 064
     Dates: start: 20100514
  6. TOPIRAMATE [Concomitant]
     Dosage: UNK
     Route: 064
  7. HYDROCODONE [Concomitant]
     Dosage: UNK
     Route: 064
  8. POLYMYXIN B [Concomitant]
     Dosage: UNK
     Route: 064
  9. PROPOXYPHENE NAPSYLATE [Concomitant]
     Dosage: UNK
     Route: 064
  10. CEPHALEXIN [Concomitant]
     Dosage: UNK
     Route: 064
  11. TYLENOL [Concomitant]
     Dosage: UNK
     Route: 064
  12. PRENATAL VITAMINS [Concomitant]
     Route: 064

REACTIONS (16)
  - Foetal exposure during pregnancy [Unknown]
  - Fallot^s tetralogy [Recovering/Resolving]
  - Head injury [Unknown]
  - Vomiting [Recovered/Resolved]
  - Patent ductus arteriosus [Unknown]
  - Pulmonary valve stenosis congenital [Unknown]
  - Atrial septal defect [Recovering/Resolving]
  - Ventricular hypoplasia [Unknown]
  - Ventricular septal defect [Unknown]
  - Pulmonary valve incompetence [Unknown]
  - Pericardial effusion [Recovered/Resolved]
  - Coarctation of the aorta [Unknown]
  - Cardiomegaly [Unknown]
  - Torticollis [Recovered/Resolved]
  - Weight increased [Unknown]
  - Syncope [Unknown]
